FAERS Safety Report 7410116-3 (Version None)
Quarter: 2011Q2

REPORT INFORMATION
  Report Type: 
  Country: None (occurrence: None)
  Receive Date: 20110412
  Receipt Date: 20110405
  Transmission Date: 20111010
  Serious: Yes (Hospitalization)
  Sender: FDA-Public Use
  Company Number: FR-ROCHE-770185

PATIENT
  Sex: Female

DRUGS (3)
  1. ROACTEMRA [Suspect]
     Dosage: SECOND INFUSION OF TOCILIZUMAB.
     Route: 042
     Dates: start: 20110128
  2. ROACTEMRA [Suspect]
     Indication: ANKYLOSING SPONDYLITIS
     Dosage: FREQUENCY: CYCLE
     Route: 042
     Dates: start: 20101230
  3. ROACTEMRA [Suspect]
     Dosage: THIRD INFUSION
     Route: 042
     Dates: start: 20110225, end: 20110225

REACTIONS (3)
  - ABDOMINAL PAIN [None]
  - MOUTH ULCERATION [None]
  - DIARRHOEA [None]
